FAERS Safety Report 8977729 (Version 2)
Quarter: 2013Q1

REPORT INFORMATION
  Report Type: Spontaneous
  Country: US (occurrence: US)
  Receive Date: 20121219
  Receipt Date: 20130122
  Transmission Date: 20140127
  Serious: No
  Sender: FDA-Public Use
  Company Number: US-ROXANE LABORATORIES, INC.-2012-RO-02544RO

PATIENT
  Sex: Male

DRUGS (6)
  1. BUPRENORPHINE HYDROCHLORIDE [Suspect]
     Indication: NEURALGIA
     Dosage: 8 MG
     Route: 060
  2. NEURONTIN [Concomitant]
     Dosage: 1800 MG
  3. DIAZEPAM [Concomitant]
     Dosage: 8 MG
  4. SIMVASTATIN [Concomitant]
  5. MVI [Concomitant]
  6. ASPIRIN [Concomitant]

REACTIONS (4)
  - Nausea [Not Recovered/Not Resolved]
  - Drug ineffective for unapproved indication [Not Recovered/Not Resolved]
  - Product taste abnormal [Not Recovered/Not Resolved]
  - Product quality issue [Not Recovered/Not Resolved]
